FAERS Safety Report 7597509-9 (Version None)
Quarter: 2011Q3

REPORT INFORMATION
  Report Type: 
  Country: None (occurrence: None)
  Receive Date: 20110708
  Receipt Date: 20110630
  Transmission Date: 20111222
  Serious: Yes (Hospitalization, Other)
  Sender: FDA-Public Use
  Company Number: PHHY2011US29908

PATIENT
  Sex: Female
  Weight: 115.65 kg

DRUGS (7)
  1. CLARITHROMYCIN [Suspect]
     Indication: SINUSITIS
     Dosage: UNK UKN, UNK
  2. GILENYA [Suspect]
     Indication: MULTIPLE SCLEROSIS
     Dosage: 0.5 MG, DAILY
     Route: 048
     Dates: start: 20110415, end: 20110430
  3. CIPROFLOXACIN HCL [Suspect]
     Indication: URINARY TRACT INFECTION
     Dosage: 500 MG, UNK
  4. PREVACID [Concomitant]
     Dosage: 30 MG, UNK
  5. CYMBALTA [Concomitant]
     Dosage: 90 MG, UNK
  6. DESOGEN [Concomitant]
     Dosage: UNK UKN, UNK
  7. AMBIEN [Concomitant]
     Indication: INSOMNIA
     Dosage: 1 DF, PRN

REACTIONS (9)
  - GASTRITIS [None]
  - MULTIPLE SCLEROSIS RELAPSE [None]
  - ABDOMINAL PAIN [None]
  - DYSPEPSIA [None]
  - NAUSEA [None]
  - URINARY TRACT INFECTION [None]
  - DEHYDRATION [None]
  - VOMITING [None]
  - GASTROINTESTINAL DISORDER [None]
